FAERS Safety Report 9916053 (Version 1)
Quarter: 2014Q1

REPORT INFORMATION
  Report Type: Spontaneous
  Country: AU (occurrence: None)
  Receive Date: 20140219
  Receipt Date: 20140219
  Transmission Date: 20141002
  Serious: Yes (Death)
  Sender: FDA-Public Use
  Company Number: 2014P1001154

PATIENT
  Age: 52 Year
  Sex: Male

DRUGS (14)
  1. METOCLOPRAMIDE [Suspect]
  2. MORPHINE [Suspect]
  3. DIAZEPAM [Suspect]
  4. LAMOTRIGINE [Suspect]
  5. ACETAMINOPHEN [Suspect]
  6. PROPRANOLOL [Suspect]
  7. DULOXETINE [Suspect]
  8. ARIPIPRAZOLE [Suspect]
  9. CHLORPHENIRAMINE [Suspect]
  10. CODEINE [Suspect]
  11. METHAMPHETAMINE [Suspect]
  12. NITRAZEPAM [Suspect]
  13. PHOLCODINE [Suspect]
  14. PROPOXYPHENE [Suspect]

REACTIONS (4)
  - Arteriosclerosis coronary artery [None]
  - Toxicity to various agents [None]
  - Cardiomegaly [None]
  - Drug interaction [None]
